FAERS Safety Report 16044313 (Version 1)
Quarter: 2019Q1

REPORT INFORMATION
  Report Type: Spontaneous
  Country: US (occurrence: US)
  Receive Date: 20190306
  Receipt Date: 20190306
  Transmission Date: 20190418
  Serious: Yes (Other)
  Sender: FDA-Public Use
  Company Number: PHEH2019US008946

PATIENT
  Sex: Female
  Weight: 62.14 kg

DRUGS (21)
  1. SANDOSTATIN LAR DEPOT [Suspect]
     Active Substance: OCTREOTIDE ACETATE
     Indication: PRODUCT USED FOR UNKNOWN INDICATION
     Dosage: UNK
     Route: 065
  2. PROPRANOLOL [Concomitant]
     Active Substance: PROPRANOLOL HYDROCHLORIDE
     Indication: MYOCARDIAL INFARCTION
     Dosage: 20 MG, BID (IN AM AND PM)
     Route: 065
     Dates: start: 2011
  3. VITAMIN D [Concomitant]
     Active Substance: CHOLECALCIFEROL
     Indication: VITAMIN D DECREASED
     Dosage: 50000 U, QMO
     Route: 065
     Dates: start: 2013
  4. DIPHENOXYLATE/ATROPINE [Suspect]
     Active Substance: ATROPINE\DIPHENOXYLATE
     Indication: DIARRHOEA
     Dosage: 2 DF, QID (AS NEEDED)
     Route: 065
     Dates: start: 201607
  5. PROLIA [Concomitant]
     Active Substance: DENOSUMAB
     Indication: PRODUCT USED FOR UNKNOWN INDICATION
     Dosage: 60 MG, UNK (SHOT EVERY SIX MONTH)
     Route: 065
  6. SERTRALINE HCL [Concomitant]
     Active Substance: SERTRALINE HYDROCHLORIDE
     Indication: HEART RATE ABNORMAL
     Dosage: 50 MG, QD
     Route: 065
     Dates: start: 1998
  7. ASPIRIN. [Concomitant]
     Active Substance: ASPIRIN
     Indication: PRODUCT USED FOR UNKNOWN INDICATION
     Dosage: 81 MG, QD
     Route: 065
     Dates: start: 2011
  8. ONDANSETRON HCL [Concomitant]
     Active Substance: ONDANSETRON HYDROCHLORIDE
     Indication: MALAISE
     Dosage: 1 DF, TID (AS NEEDED)
     Route: 065
  9. TRAMADOL. [Concomitant]
     Active Substance: TRAMADOL
     Indication: PAIN
     Dosage: 50 MG, UNK (ONE TO TWO TIMES DAILY AS NEEEDED)
     Route: 065
  10. TRAMADOL. [Concomitant]
     Active Substance: TRAMADOL
     Indication: ARTHRITIS
  11. SYNTHROID [Concomitant]
     Active Substance: LEVOTHYROXINE SODIUM
     Indication: PRODUCT USED FOR UNKNOWN INDICATION
     Dosage: 50 UG, QD
     Route: 065
     Dates: start: 2011
  12. VITAMIN B12 [Concomitant]
     Active Substance: CYANOCOBALAMIN
     Indication: PRODUCT USED FOR UNKNOWN INDICATION
     Dosage: 1 DF, QMO
     Route: 065
     Dates: start: 2011
  13. ALREX [Concomitant]
     Active Substance: LOTEPREDNOL ETABONATE
     Indication: DRY EYE
     Dosage: 1 DRP, BID (IN LEFT EYE)
     Route: 065
     Dates: start: 1992
  14. IMBRUVICA [Concomitant]
     Active Substance: IBRUTINIB
     Indication: NEOPLASM MALIGNANT
     Dosage: 3 DF, QD
     Dates: start: 2013
  15. POTASSIUM [Concomitant]
     Active Substance: POTASSIUM
     Indication: BONE DISORDER
     Dosage: 15 ML, QD
     Route: 065
     Dates: start: 2013
  16. PROCARDIA XL [Concomitant]
     Active Substance: NIFEDIPINE
     Indication: MYOCARDIAL INFARCTION
     Dosage: 30 MG, QD
     Route: 065
     Dates: start: 2011
  17. DIAZEPAM. [Concomitant]
     Active Substance: DIAZEPAM
     Indication: PALPITATIONS
     Dosage: 2 MG, BID (IN AM AND PM AS NEEDED)
     Route: 065
     Dates: start: 2011
  18. OXYCODONE HYDROCHLORIDE. [Concomitant]
     Active Substance: OXYCODONE HYDROCHLORIDE
     Indication: PAIN
     Dosage: 2 DF, Q12H
     Route: 065
     Dates: start: 2015
  19. IMDUR [Concomitant]
     Active Substance: ISOSORBIDE MONONITRATE
     Indication: MYOCARDIAL INFARCTION
     Dosage: 60 MG, QD
     Route: 065
     Dates: start: 1998
  20. ZOCOR [Concomitant]
     Active Substance: SIMVASTATIN
     Indication: BLOOD CHOLESTEROL ABNORMAL
     Dosage: 20 MG, UNK (NIGHTLY)
     Route: 065
     Dates: start: 2012
  21. CLONAZEPAM. [Concomitant]
     Active Substance: CLONAZEPAM
     Indication: SLEEP DISORDER
     Dosage: 0.5 MG, QD
     Dates: start: 1998

REACTIONS (6)
  - Constipation [Unknown]
  - Gastrointestinal pain [Unknown]
  - Carcinoid tumour of the stomach [Unknown]
  - Carcinoid tumour of the small bowel [Unknown]
  - Diarrhoea [Unknown]
  - Abdominal discomfort [Unknown]
